FAERS Safety Report 5730861-5 (Version None)
Quarter: 2008Q2

REPORT INFORMATION
  Report Type: 
  Country: None (occurrence: None)
  Receive Date: 20080507
  Receipt Date: 20080425
  Transmission Date: 20081010
  Serious: Yes (Hospitalization)
  Sender: FDA-Public Use
  Company Number: BE-PFIZER INC-2008037165

PATIENT
  Sex: Female

DRUGS (6)
  1. SU-011,248 [Suspect]
     Dosage: DAILY DOSE:37.5MG
     Route: 048
     Dates: start: 20080409, end: 20080422
  2. OMEPRAZOLE [Concomitant]
     Route: 048
  3. L-THYROXIN [Concomitant]
     Route: 048
  4. FOSAMAX [Concomitant]
     Route: 048
  5. PULMICORT [Concomitant]
     Route: 055
  6. CALCIUM CARBONATE [Concomitant]
     Route: 048

REACTIONS (1)
  - GENERAL PHYSICAL HEALTH DETERIORATION [None]
